FAERS Safety Report 6442083-3 (Version None)
Quarter: 2009Q4

REPORT INFORMATION
  Report Type: 
  Country: None (occurrence: None)
  Receive Date: 20091116
  Receipt Date: 20091102
  Transmission Date: 20100525
  Serious: Yes (Other)
  Sender: FDA-Public Use
  Company Number: PHHY2009NL49036

PATIENT

DRUGS (1)
  1. CALCITONIN [Suspect]
     Route: 064

REACTIONS (3)
  - BLOOD CALCIUM INCREASED [None]
  - DRUG EXPOSURE DURING PREGNANCY [None]
  - PREMATURE BABY [None]
